FAERS Safety Report 7300775-8 (Version None)
Quarter: 2011Q1

REPORT INFORMATION
  Report Type: 
  Country: None (occurrence: None)
  Receive Date: 20110103
  Receipt Date: 20100716
  Transmission Date: 20110831
  Serious: Yes (Hospitalization)
  Sender: FDA-Public Use
  Company Number: US-004785

PATIENT
  Age: 54 Year
  Sex: Female
  Weight: 93 kg

DRUGS (15)
  1. MULTIHANCE [Suspect]
     Indication: NUCLEAR MAGNETIC RESONANCE IMAGING
     Dosage: 20ML ONCE INTRAVENOUS (NOT OTHERWISE SPECIFIED)
     Route: 042
     Dates: start: 20100714, end: 20100714
  2. MULTIHANCE [Suspect]
     Indication: ARTHRALGIA
     Dosage: 20ML ONCE INTRAVENOUS (NOT OTHERWISE SPECIFIED)
     Route: 042
     Dates: start: 20100714, end: 20100714
  3. MULTIHANCE [Suspect]
     Indication: BACK PAIN
     Dosage: 20ML ONCE INTRAVENOUS (NOT OTHERWISE SPECIFIED)
     Route: 042
     Dates: start: 20100714, end: 20100714
  4. FISH OIL (FISH OIL) [Concomitant]
  5. MELOXICAM [Concomitant]
  6. MEDROL DOSE PACK (METHYLPRENISOLONE) [Concomitant]
  7. OXYCODONE HCL [Concomitant]
  8. BETIMOL EYE DROPS (TIMOLOL) [Concomitant]
  9. TIZANIDINE (TIZANIDINE) [Concomitant]
  10. ZOLPIDEM [Concomitant]
  11. DIAZEPAM [Concomitant]
  12. VITAMIN D [Concomitant]
  13. SIMVASTATIN [Concomitant]
  14. MUSCLE RELAXER [Concomitant]
  15. GABAPENTIN [Concomitant]

REACTIONS (9)
  - FEELING HOT [None]
  - DEPRESSED LEVEL OF CONSCIOUSNESS [None]
  - HEART RATE DECREASED [None]
  - WHEEZING [None]
  - UNRESPONSIVE TO STIMULI [None]
  - BLOOD PRESSURE DECREASED [None]
  - DYSPNOEA [None]
  - FOAMING AT MOUTH [None]
  - VISUAL IMPAIRMENT [None]
